FAERS Safety Report 4577879-6 (Version None)
Quarter: 2005Q1

REPORT INFORMATION
  Report Type: 
  Country: None (occurrence: None)
  Receive Date: 20050209
  Receipt Date: 20050124
  Transmission Date: 20050727
  Serious: Yes (Hospitalization)
  Sender: FDA-Public Use
  Company Number: EWC050142396

PATIENT
  Age: 75 Year
  Sex: Female

DRUGS (1)
  1. FORTEO [Suspect]
     Indication: OSTEOPOROSIS
     Dosage: 20 UG/1 DAY
     Dates: start: 20041101, end: 20041224

REACTIONS (3)
  - BENIGN ANORECTAL NEOPLASM [None]
  - CONDITION AGGRAVATED [None]
  - HAEMORRHOIDAL HAEMORRHAGE [None]
